FAERS Safety Report 12210561 (Version 1)
Quarter: 2016Q1

REPORT INFORMATION
  Report Type: Spontaneous
  Country: US (occurrence: None)
  Receive Date: 20160324
  Receipt Date: 20160324
  Transmission Date: 20160526
  Serious: Yes (Life-Threatening)
  Sender: FDA-Public Use
  Company Number: None

PATIENT
  Age: 67 Year
  Sex: Female
  Weight: 124.74 kg

DRUGS (21)
  1. METOCLOPRAMIDE. [Concomitant]
     Active Substance: METOCLOPRAMIDE
  2. OMEPRAZOLE DR [Concomitant]
     Active Substance: OMEPRAZOLE
  3. PANTAPRAZOLE DR [Concomitant]
  4. SUCRALFATE3 [Concomitant]
  5. DOCUSATE SODIUM. [Concomitant]
     Active Substance: DOCUSATE SODIUM
  6. LOSARTAN. [Concomitant]
     Active Substance: LOSARTAN
  7. SIMVASTATIN. [Concomitant]
     Active Substance: SIMVASTATIN
  8. NIFEDIPINE. [Concomitant]
     Active Substance: NIFEDIPINE
  9. CYMBALTA [Suspect]
     Active Substance: DULOXETINE HYDROCHLORIDE
     Indication: FIBROMYALGIA
     Dosage: 1 PILL TWICE DAILY TAKEN BY MOUTH
     Route: 048
     Dates: start: 20150910, end: 20160317
  10. CYMBALTA [Suspect]
     Active Substance: DULOXETINE HYDROCHLORIDE
     Indication: BACK PAIN
     Dosage: 1 PILL TWICE DAILY TAKEN BY MOUTH
     Route: 048
     Dates: start: 20150910, end: 20160317
  11. ACYCLOVIR. [Concomitant]
     Active Substance: ACYCLOVIR
  12. LANTUS SOLOSTAR INSULIN PEN [Concomitant]
  13. NOVOLOG [Concomitant]
     Active Substance: INSULIN ASPART
  14. BABY ASPIRIN [Concomitant]
     Active Substance: ASPIRIN
  15. HYDROCHIOROTHIAZIDE [Concomitant]
  16. DULOXETINE. [Concomitant]
     Active Substance: DULOXETINE
  17. MULTIVITAMIN [Concomitant]
     Active Substance: VITAMINS
  18. PRAMIPEXOLE. [Concomitant]
     Active Substance: PRAMIPEXOLE
  19. TEMAZEPAM 15 MG NOVEL 121 (WALMART) [Suspect]
     Active Substance: TEMAZEPAM
     Indication: INSOMNIA
     Dosage: 1 PILL AT BEDTIME TAKEN BY MOUTH
     Route: 048
  20. METOPROLOL SUCCINATE. [Concomitant]
     Active Substance: METOPROLOL SUCCINATE
  21. ORAL ACYCLOVIR [Concomitant]

REACTIONS (9)
  - Hallucinations, mixed [None]
  - Confusional state [None]
  - Personality change [None]
  - Feeling abnormal [None]
  - Mental impairment [None]
  - Memory impairment [None]
  - Impaired driving ability [None]
  - Loss of consciousness [None]
  - Disorientation [None]

NARRATIVE: CASE EVENT DATE: 20160316
